FAERS Safety Report 6849126-3 (Version None)
Quarter: 2010Q3

REPORT INFORMATION
  Report Type: 
  Country: None (occurrence: None)
  Receive Date: 20100716
  Receipt Date: 20100705
  Transmission Date: 20110219
  Serious: Yes (Other)
  Sender: FDA-Public Use
  Company Number: PHHY2010DE35719

PATIENT
  Sex: Female
  Weight: 54 kg

DRUGS (1)
  1. EXFORGE [Suspect]
     Indication: HYPERTENSION
     Dosage: 80/5 MG, PER DAY
     Route: 048
     Dates: start: 20080301

REACTIONS (3)
  - MYALGIA [None]
  - MYASTHENIA GRAVIS [None]
  - PSORIASIS [None]
